FAERS Safety Report 7487359-6 (Version None)
Quarter: 2011Q2

REPORT INFORMATION
  Report Type: 
  Country: None (occurrence: None)
  Receive Date: 20110510
  Receipt Date: 20110427
  Transmission Date: 20111010
  Serious: Yes (Hospitalization)
  Sender: FDA-Public Use
  Company Number: EU-2011-10071

PATIENT
  Sex: Female

DRUGS (3)
  1. SAMSCA [Suspect]
     Indication: BLADDER CANCER
     Dosage: 30 MG MILLIGRAM(S), DAILY DOSE, ORAL
     Route: 048
     Dates: start: 20110201
  2. SAMSCA [Suspect]
     Indication: BREAST CANCER
     Dosage: 30 MG MILLIGRAM(S), DAILY DOSE, ORAL
     Route: 048
     Dates: start: 20110201
  3. SAMSCA [Suspect]
     Indication: INAPPROPRIATE ANTIDIURETIC HORMONE SECRETION
     Dosage: 30 MG MILLIGRAM(S), DAILY DOSE, ORAL
     Route: 048
     Dates: start: 20110201

REACTIONS (1)
  - PANCREATITIS ACUTE [None]
